FAERS Safety Report 23454056 (Version 1)
Quarter: 2024Q1

REPORT INFORMATION
  Report Type: Spontaneous
  Country: DE (occurrence: DE)
  Receive Date: 20240130
  Receipt Date: 20240130
  Transmission Date: 20240409
  Serious: Yes (Other)
  Sender: FDA-Public Use
  Company Number: DE-CELLTRION INC.-2024DE001783

PATIENT

DRUGS (2)
  1. INFLIXIMAB [Suspect]
     Active Substance: INFLIXIMAB
     Indication: Crohn^s disease
     Dosage: 500 MG, THE MEDICATION HAD ALREADY BEEN ADMINISTERED 4-5 TIMES PREVIOUSLY .
     Route: 042
     Dates: start: 20231129, end: 20231129
  2. HYDROCORTISONE [Concomitant]
     Active Substance: HYDROCORTISONE
     Dosage: HYDROCORTISONE 100MG I.V. IS ADMINISTERED IN ADDITION TO REMSIMA.
     Route: 042
     Dates: start: 20231129, end: 20231129

REACTIONS (8)
  - Respiratory distress [Recovered/Resolved]
  - Drug hypersensitivity [Recovered/Resolved]
  - Infusion related hypersensitivity reaction [Recovered/Resolved]
  - Conversion disorder [Recovered/Resolved]
  - Flushing [Recovered/Resolved]
  - Vomiting [Recovered/Resolved]
  - Nausea [Recovered/Resolved]
  - Overdose [Unknown]

NARRATIVE: CASE EVENT DATE: 20231129
